FAERS Safety Report 6669410-6 (Version None)
Quarter: 2010Q2

REPORT INFORMATION
  Report Type: 
  Country: None (occurrence: None)
  Receive Date: 20100406
  Receipt Date: 20100325
  Transmission Date: 20101027
  Serious: Yes (Hospitalization, Other)
  Sender: FDA-Public Use
  Company Number: US-PFIZER INC-2009309110

PATIENT
  Sex: Female

DRUGS (11)
  1. SUTENT [Suspect]
     Indication: METASTATIC RENAL CELL CARCINOMA
     Dosage: 50 MG, 1X/DAY, 4-2 CYCLE
     Route: 048
     Dates: start: 20091109, end: 20091209
  2. XANAX [Concomitant]
     Dosage: 1 MG, TABLETS, 1 BID OR TID
     Route: 048
  3. PRILOSEC [Concomitant]
     Dosage: 20 MG, 1X/DAY
  4. TENORMIN [Concomitant]
     Dosage: 25 MG, 2X/DAY
     Route: 048
  5. TEMAZEPAM [Concomitant]
     Dosage: 30 MG, 1 AT HS
     Route: 048
  6. MACRODANTIN [Concomitant]
     Dosage: 50 MG, 1X/DAY
     Route: 048
  7. ULTRACET [Concomitant]
     Dosage: 37.5-325 MG, 1 Q 6 HRS, PNR
     Route: 048
  8. FLONASE [Concomitant]
     Dosage: 50 MCG
  9. PROTOPIC [Concomitant]
     Dosage: UNK
  10. LIDOCAINE HYDROCHLORIDE [Concomitant]
  11. DARVOCET-N 100 [Concomitant]
     Dosage: 100-650 MG, 1-2 EVERY 6 HRS AS NEEDED
     Route: 048

REACTIONS (5)
  - DEEP VEIN THROMBOSIS [None]
  - HEART RATE DECREASED [None]
  - LEUKOPENIA [None]
  - RED BLOOD CELL COUNT DECREASED [None]
  - THROMBOCYTOPENIA [None]
